FAERS Safety Report 9916579 (Version 2)
Quarter: 2014Q1

REPORT INFORMATION
  Report Type: Spontaneous
  Country: US (occurrence: US)
  Receive Date: 20140221
  Receipt Date: 20140316
  Transmission Date: 20141002
  Serious: Yes (Hospitalization)
  Sender: FDA-Public Use
  Company Number: US-BAYER-2014-026314

PATIENT
  Age: 37 Year
  Sex: Female
  Weight: 92.97 kg

DRUGS (1)
  1. MIRENA [Suspect]
     Indication: CONTRACEPTION
     Dosage: 20 MCG/24HR, CONT
     Route: 015
     Dates: start: 2009, end: 201002

REACTIONS (7)
  - Uterine perforation [None]
  - Pregnancy with contraceptive device [None]
  - Drug ineffective [None]
  - Pain [None]
  - Abdominal pain [None]
  - Injury [None]
  - Emotional distress [None]
